FAERS Safety Report 5912554-4 (Version None)
Quarter: 2008Q4

REPORT INFORMATION
  Report Type: 
  Country: None (occurrence: None)
  Receive Date: 20081008
  Receipt Date: 20081006
  Transmission Date: 20090506
  Serious: Yes (Other)
  Sender: FDA-Public Use
  Company Number: GB-BRISTOL-MYERS SQUIBB COMPANY-14358659

PATIENT
  Age: 85 Year
  Sex: Female

DRUGS (3)
  1. HYDREA [Suspect]
     Indication: PLATELET COUNT INCREASED
     Dosage: 1 DF=1 CAPSULE.  INITIALLY RECEIVED THREE 500 MG CAPSULES/WEEK. LATER INCREASED TO 8 CAPS/WEEK.
     Route: 048
  2. HYDREA [Suspect]
     Indication: RED BLOOD CELL COUNT INCREASED
     Dosage: 1 DF=1 CAPSULE.  INITIALLY RECEIVED THREE 500 MG CAPSULES/WEEK. LATER INCREASED TO 8 CAPS/WEEK.
     Route: 048
  3. ASPIRIN [Suspect]

REACTIONS (2)
  - CONTUSION [None]
  - HAEMORRHAGE [None]
